FAERS Safety Report 7013640-0 (Version None)
Quarter: 2010Q3

REPORT INFORMATION
  Report Type: 
  Country: None (occurrence: None)
  Receive Date: 20100924
  Receipt Date: 20100914
  Transmission Date: 20110219
  Serious: Yes (Other)
  Sender: FDA-Public Use
  Company Number: US-PFIZER INC-2010116724

PATIENT
  Sex: Male
  Weight: 86.17 kg

DRUGS (2)
  1. GABAPENTIN [Suspect]
     Indication: PAIN
     Dosage: 600 MG, 2X/DAY
     Route: 048
     Dates: start: 20050101
  2. FENTANYL [Suspect]
     Indication: PAIN
     Dosage: 1 PATCH, Q 3 DAYS
     Route: 062
     Dates: start: 20050101, end: 20100818

REACTIONS (3)
  - CARDIAC ARREST [None]
  - MEMORY IMPAIRMENT [None]
  - UNRESPONSIVE TO STIMULI [None]
